APPROVED DRUG PRODUCT: TRIFERIC
Active Ingredient: FERRIC PYROPHOSPHATE CITRATE
Strength: 27.2MG IRON/5ML (5.44MG IRON/ML)
Dosage Form/Route: SOLUTION;INTRAVENOUS
Application: N206317 | Product #001
Applicant: ROCKWELL MEDICAL INC
Approved: Jan 23, 2015 | RLD: Yes | RS: No | Type: DISCN

PATENTS:
Patent 7816404 | Expires: Apr 17, 2029